FAERS Safety Report 4358339-4 (Version None)
Quarter: 2004Q2

REPORT INFORMATION
  Report Type: 
  Country: None (occurrence: None)
  Receive Date: 20040510
  Receipt Date: 20040503
  Transmission Date: 20050107
  Serious: Yes (Hospitalization)
  Sender: FDA-Public Use
  Company Number: TCI2004A01877

PATIENT
  Age: 43 Year
  Sex: Female

DRUGS (4)
  1. LEUPLIN FOR INJECTION KIT3.75 (LEUPROLIDE ACETATE) (INJECTION) [Suspect]
     Indication: UTERINE LEIOMYOMA
     Dosage: 3.75 MG (3.75 MG, 1 IN 28 D)
     Route: 058
     Dates: start: 20031224, end: 20040119
  2. FERROUS CITRATE (PREPARATION FOR ORAL USE (NOS)) [Concomitant]
  3. MECOBALAMIN [Concomitant]
  4. LOXOPROFEN SODIUM (TABLETS) [Concomitant]

REACTIONS (4)
  - CEREBRAL VENOUS THROMBOSIS [None]
  - HEADACHE [None]
  - VISUAL ACUITY REDUCED [None]
  - VOMITING [None]
